FAERS Safety Report 18455161 (Version 1)
Quarter: 2020Q4

REPORT INFORMATION
  Report Type: Report from Study
  Country: BR (occurrence: BR)
  Receive Date: 20201103
  Receipt Date: 20201103
  Transmission Date: 20210114
  Serious: Yes (Other)
  Sender: FDA-Public Use
  Company Number: BR-TAKEDA-BR202000292

PATIENT

DRUGS (6)
  1. HEMO-8R [Suspect]
     Active Substance: ANTIHEMOPHILIC FACTOR, HUMAN RECOMBINANT
     Dosage: UNK, 3X A WEEK
     Route: 042
     Dates: start: 20200103
  2. HEMO-8R [Suspect]
     Active Substance: ANTIHEMOPHILIC FACTOR, HUMAN RECOMBINANT
     Dosage: UNK, TUESDAYS, THURSDAYS AND SATURDAYS
     Route: 042
  3. HEMO-8R [Suspect]
     Active Substance: ANTIHEMOPHILIC FACTOR, HUMAN RECOMBINANT
     Dosage: 2500 INTERNATIONAL UNIT
     Route: 042
  4. HEMO-8R [Suspect]
     Active Substance: ANTIHEMOPHILIC FACTOR, HUMAN RECOMBINANT
     Indication: FACTOR VIII DEFICIENCY
     Dosage: UNK, 3X A WEEK
     Route: 042
     Dates: start: 19980715
  5. HEMO-8R [Suspect]
     Active Substance: ANTIHEMOPHILIC FACTOR, HUMAN RECOMBINANT
     Dosage: 2000 INTERNATIONAL UNIT
     Route: 042
  6. HEMO-8R [Suspect]
     Active Substance: ANTIHEMOPHILIC FACTOR, HUMAN RECOMBINANT
     Dosage: 2500 INTERNATIONAL UNIT
     Route: 042

REACTIONS (7)
  - Injury [Not Recovered/Not Resolved]
  - Pain [Recovered/Resolved with Sequelae]
  - Haemarthrosis [Not Recovered/Not Resolved]
  - Extra dose administered [Recovered/Resolved]
  - Joint swelling [Recovered/Resolved with Sequelae]
  - Wound [Not Recovered/Not Resolved]
  - Gait disturbance [Recovered/Resolved with Sequelae]
